FAERS Safety Report 18119451 (Version 1)
Quarter: 2020Q3

REPORT INFORMATION
  Report Type: Spontaneous
  Country: KR (occurrence: KR)
  Receive Date: 20200806
  Receipt Date: 20200806
  Transmission Date: 20201103
  Serious: Yes (Death)
  Sender: FDA-Public Use
  Company Number: KR-PFIZER INC-2020295493

PATIENT
  Sex: Male

DRUGS (31)
  1. SYNTHROID [Concomitant]
     Active Substance: LEVOTHYROXINE SODIUM
     Dosage: 1 TIME FOR 21 DAYS
  2. GLUPA [Concomitant]
     Active Substance: METFORMIN HYDROCHLORIDE
     Dosage: 4 TIMES FOR 11 DAYS
  3. XALKORI [Suspect]
     Active Substance: CRIZOTINIB
     Dosage: 4 TIMES FOR 30 DAYS
  4. GALVUS [Concomitant]
     Active Substance: VILDAGLIPTIN
     Dosage: 4 TIMES FOR 11 DAYS
  5. MGO [Concomitant]
     Active Substance: MAGNESIUM OXIDE
     Dosage: 3 TIMES FOR 42 DAYS
     Dates: start: 20170602
  6. MAGNESIUM OXIDE. [Concomitant]
     Active Substance: MAGNESIUM OXIDE
     Dosage: 9 TIMES FOR 22 DAYS
  7. PRITOR [TELMISARTAN] [Concomitant]
     Dosage: 80 MG (1 TIME FOR 12 DAYS)
  8. COMPLEX PHAZYME TWO?LAYER TABLETS [Concomitant]
     Dosage: 1 TIME FOR 2 DAYS
  9. XALKORI [Suspect]
     Active Substance: CRIZOTINIB
     Dosage: 250 MG (2 TIMES FOR 42 DAYS)
     Dates: start: 20170825
  10. THRUPAS [Concomitant]
     Active Substance: SILODOSIN
     Dosage: 1 TIME FOR 1 DAY
  11. IRCODON [Concomitant]
     Active Substance: OXYCODONE HYDROCHLORIDE
     Dosage: 1 TIME FOR 1 DAY
  12. DIAMICRON MR [Concomitant]
     Active Substance: GLICLAZIDE
     Dosage: 4 TIMES FOR 11 DAYS
  13. METOCLOPRAMIDE. [Concomitant]
     Active Substance: METOCLOPRAMIDE
     Dosage: 1 TIME FOR 1 DAY
  14. XALKORI [Suspect]
     Active Substance: CRIZOTINIB
     Dosage: 250 MG
     Dates: start: 20170315, end: 20170331
  15. XALKORI [Suspect]
     Active Substance: CRIZOTINIB
     Dosage: 250 MG (2 TIMES FOR 42 DAYS)
     Dates: start: 20170421
  16. XALKORI [Suspect]
     Active Substance: CRIZOTINIB
     Dosage: 250 MG (2 TIMES FOR 42 DAYS)
     Dates: start: 20170602
  17. XALKORI [Suspect]
     Active Substance: CRIZOTINIB
     Dosage: 250 MG (2 TIMES FOR 42 DAYS)
     Dates: start: 20170908
  18. GLUPA [Concomitant]
     Active Substance: METFORMIN HYDROCHLORIDE
     Dosage: 1 TIME FOR 21 DAYS
  19. AGIO [Concomitant]
     Dosage: 1 TIME FOR 2 DAYS
  20. XALKORI [Suspect]
     Active Substance: CRIZOTINIB
     Dosage: 250 MG (2 TIMES FOR 42 DAYS)
     Dates: start: 20170714
  21. MGO [Concomitant]
     Active Substance: MAGNESIUM OXIDE
     Dosage: 3 TIMES FOR 14 DAYS
     Dates: start: 20170908
  22. GLUPA [Concomitant]
     Active Substance: METFORMIN HYDROCHLORIDE
     Dosage: 1 TIME FOR 6 DAYS
  23. GALVUS [Concomitant]
     Active Substance: VILDAGLIPTIN
     Dosage: 1 TIME FOR 6 DAYS
  24. DULCOLAX (BISACODYL) [Concomitant]
     Active Substance: BISACODYL
     Dosage: 1 TIME FOR 2 DAYS
  25. XALKORI [Suspect]
     Active Substance: CRIZOTINIB
     Dosage: ONE TIME FOR 1 DAY
  26. MGO [Concomitant]
     Active Substance: MAGNESIUM OXIDE
     Dosage: 3 TIMES FOR 42 DAYS
     Dates: start: 20170714
  27. PRITOR [TELMISARTAN] [Concomitant]
     Dosage: 40 MG (4 TIMES FOR 1 DAY)
  28. FINASTAR [Concomitant]
     Dosage: 1 TIME FOR 14 DAYS
  29. MGO [Concomitant]
     Active Substance: MAGNESIUM OXIDE
     Dosage: 3 TIMES FOR 14 DAYS
     Dates: start: 20170825
  30. DIAMICRON MR [Concomitant]
     Active Substance: GLICLAZIDE
     Dosage: 1 TIME FOR 5 DAYS
  31. MAGNESIUM OXIDE. [Concomitant]
     Active Substance: MAGNESIUM OXIDE
     Dosage: 4 TIMES FOR 14 DAYS

REACTIONS (1)
  - Death [Fatal]
